FAERS Safety Report 19800662 (Version 3)
Quarter: 2021Q4

REPORT INFORMATION
  Report Type: Spontaneous
  Country: US (occurrence: US)
  Receive Date: 20210908
  Receipt Date: 20211217
  Transmission Date: 20220303
  Serious: Yes (Hospitalization)
  Sender: FDA-Public Use
  Company Number: US-JNJFOC-20210901748

PATIENT
  Age: 19 Year
  Sex: Male
  Weight: 60 kg

DRUGS (6)
  1. TYLENOL [Suspect]
     Active Substance: ACETAMINOPHEN
     Indication: Pain
     Route: 065
     Dates: start: 20210622
  2. CEFDINIR [Concomitant]
     Active Substance: CEFDINIR
     Indication: Product used for unknown indication
     Route: 065
     Dates: start: 20200806
  3. SPIRONOLACTONE [Concomitant]
     Active Substance: SPIRONOLACTONE
     Indication: Product used for unknown indication
     Route: 065
     Dates: start: 20120901
  4. UROSITOL [Concomitant]
     Indication: Product used for unknown indication
     Route: 065
     Dates: start: 20130101
  5. DIFICID [Concomitant]
     Active Substance: FIDAXOMICIN
     Indication: Product used for unknown indication
     Route: 065
     Dates: start: 20210204
  6. HYQVIA [Concomitant]
     Active Substance: HUMAN IMMUNOGLOBULIN G\HYALURONIDASE RECOMBINANT HUMAN
     Indication: Product used for unknown indication
     Route: 065
     Dates: start: 20200730

REACTIONS (5)
  - Pain [Unknown]
  - Diarrhoea [Unknown]
  - Intentional overdose [Unknown]
  - Alanine aminotransferase increased [Recovered/Resolved]
  - Aspartate aminotransferase increased [Recovered/Resolved]
